FAERS Safety Report 7256791-8 (Version None)
Quarter: 2011Q1

REPORT INFORMATION
  Report Type: 
  Country: None (occurrence: None)
  Receive Date: 20110129
  Receipt Date: 20100722
  Transmission Date: 20110831
  Serious: No
  Sender: FDA-Public Use
  Company Number: US-ABBOTT-10P-163-0659432-00

PATIENT
  Sex: Female
  Weight: 84.444 kg

DRUGS (2)
  1. HUMIRA [Suspect]
     Indication: ANKYLOSING SPONDYLITIS
     Route: 058
     Dates: start: 20090201, end: 20091201
  2. HUMIRA [Suspect]
     Route: 058
     Dates: start: 20100622, end: 20100622

REACTIONS (7)
  - PHARYNGITIS [None]
  - OROPHARYNGEAL PAIN [None]
  - MYCOBACTERIUM TUBERCULOSIS COMPLEX TEST POSITIVE [None]
  - PYREXIA [None]
  - EAR PAIN [None]
  - COUGH [None]
  - UPPER RESPIRATORY TRACT INFECTION [None]
